FAERS Safety Report 4795887-7 (Version None)
Quarter: 2005Q4

REPORT INFORMATION
  Report Type: 
  Country: None (occurrence: None)
  Receive Date: 20051012
  Receipt Date: 20051003
  Transmission Date: 20060501
  Serious: Yes (Hospitalization, Disabling)
  Sender: FDA-Public Use
  Company Number: US-MERCK-0510USA02331

PATIENT
  Age: 52 Year
  Sex: Male
  Weight: 69 kg

DRUGS (5)
  1. VIOXX [Suspect]
     Route: 048
     Dates: start: 19990421
  2. ASPIRIN [Concomitant]
     Route: 065
  3. ZANTAC [Concomitant]
     Route: 065
  4. NAPROXEN [Concomitant]
     Route: 065
  5. PLAVIX [Concomitant]
     Route: 065

REACTIONS (3)
  - ASTHENIA [None]
  - HYPOAESTHESIA [None]
  - MYOCARDIAL INFARCTION [None]
